FAERS Safety Report 4519379-5 (Version None)
Quarter: 2004Q4

REPORT INFORMATION
  Report Type: 
  Country: None (occurrence: None)
  Receive Date: 20041202
  Receipt Date: 20041119
  Transmission Date: 20050328
  Serious: No
  Sender: FDA-Public Use
  Company Number: CERZ-10720

PATIENT
  Age: 5 Year
  Sex: Female
  Weight: 28.8 kg

DRUGS (1)
  1. CEREZYME [Suspect]
     Indication: GAUCHER'S DISEASE
     Dosage: 120 U/KG Q2WKS IV
     Route: 042
     Dates: start: 19980824

REACTIONS (2)
  - LUNG INFECTION [None]
  - PULMONARY FIBROSIS [None]
